FAERS Safety Report 21751443 (Version 3)
Quarter: 2023Q2

REPORT INFORMATION
  Report Type: Other
  Country: AU (occurrence: AU)
  Receive Date: 20221220
  Receipt Date: 20230615
  Transmission Date: 20230721
  Serious: Yes (Other)
  Sender: FDA-Public Use
  Company Number: AU-TOLMAR, INC.-22AU037802

PATIENT
  Sex: Male

DRUGS (2)
  1. ELIGARD [Suspect]
     Active Substance: LEUPROLIDE ACETATE
     Indication: Prostate cancer
     Dosage: 22.5 MILLIGRAM, Q 3 MONTH
  2. UNSPECIFIED INGREDIENT [Suspect]
     Active Substance: UNSPECIFIED INGREDIENT
     Indication: Skin cancer
     Dosage: UNK
     Dates: start: 20230204, end: 20230208

REACTIONS (6)
  - Skin cancer [Unknown]
  - Swelling face [Unknown]
  - Erythema [Unknown]
  - Ear discomfort [Unknown]
  - Prostatic specific antigen increased [Unknown]
  - Hot flush [Unknown]
